FAERS Safety Report 5123527-6 (Version None)
Quarter: 2006Q4

REPORT INFORMATION
  Report Type: 
  Country: None (occurrence: None)
  Receive Date: 20061010
  Receipt Date: 20060928
  Transmission Date: 20070319
  Serious: Yes (Hospitalization)
  Sender: FDA-Public Use
  Company Number: US-JNJFOC-20060805771

PATIENT
  Sex: Female
  Weight: 74.84 kg

DRUGS (6)
  1. REMICADE [Suspect]
     Indication: CROHN'S DISEASE
     Route: 042
  2. IMURAN [Concomitant]
  3. PREVACID [Concomitant]
  4. ATENOLOL [Concomitant]
  5. ZOLOFT [Concomitant]
  6. IMITREX [Concomitant]

REACTIONS (3)
  - ABSCESS [None]
  - CROHN'S DISEASE [None]
  - FISTULA [None]
